FAERS Safety Report 18981679 (Version 1)
Quarter: 2021Q1

REPORT INFORMATION
  Report Type: Spontaneous
  Country: US (occurrence: US)
  Receive Date: 20210308
  Receipt Date: 20210308
  Transmission Date: 20210420
  Serious: No
  Sender: FDA-Public Use
  Company Number: US-BAYER-2021-082717

PATIENT
  Age: 74 Year
  Sex: Female
  Weight: 113.4 kg

DRUGS (4)
  1. DILTIAZEM. [Concomitant]
     Active Substance: DILTIAZEM
  2. STATIN [SIMVASTATIN] [Concomitant]
     Active Substance: SIMVASTATIN
  3. GADAVIST [Suspect]
     Active Substance: GADOBUTROL
     Indication: MAGNETIC RESONANCE IMAGING BRAIN
     Dosage: UNK UNK, ONCE
     Dates: start: 20210118, end: 20210118
  4. DIURETIC [HYDROCHLOROTHIAZIDE] [Concomitant]
     Active Substance: HYDROCHLOROTHIAZIDE

REACTIONS (7)
  - Swelling face [None]
  - Eye swelling [None]
  - Erythema [None]
  - Peripheral swelling [None]
  - Ear swelling [None]
  - Pruritus [None]
  - Lip swelling [None]
